FAERS Safety Report 7801305-4 (Version None)
Quarter: 2011Q4

REPORT INFORMATION
  Report Type: 
  Country: None (occurrence: None)
  Receive Date: 20111006
  Receipt Date: 20111006
  Transmission Date: 20120403
  Serious: Yes (Hospitalization)
  Sender: FDA-Public Use
  Company Number: None

PATIENT
  Age: 67 Year
  Sex: Female
  Weight: 66 kg

DRUGS (5)
  1. POTASSIUM CHLORIDE [Concomitant]
  2. LIPITOR [Concomitant]
  3. LISINOPRIL [Concomitant]
  4. COREG [Concomitant]
  5. AGGRENOX [Suspect]
     Indication: CEREBROVASCULAR ACCIDENT
     Dosage: 1 TABLET BID PO CHRONIC
     Route: 048

REACTIONS (2)
  - BRAIN MIDLINE SHIFT [None]
  - SUBDURAL HAEMATOMA [None]
